FAERS Safety Report 6887742-3 (Version None)
Quarter: 2010Q3

REPORT INFORMATION
  Report Type: 
  Country: None (occurrence: None)
  Receive Date: 20100730
  Receipt Date: 20100621
  Transmission Date: 20110219
  Serious: Yes (Other)
  Sender: FDA-Public Use
  Company Number: US-ROCHE-717189

PATIENT
  Age: 57 Year
  Sex: Female

DRUGS (2)
  1. BEVACIZUMAB [Suspect]
     Indication: BREAST CANCER
     Dosage: CYCLE: 28 DAYS, FREQUENCY: OVER 30-90 MIN ONN DAYS 1 AND 15, LAST DOSE PRIOE TO SAE: 04 JUNE 2010
     Route: 042
     Dates: start: 20091204
  2. IXABEPILONE [Suspect]
     Indication: BREAST CANCER
     Dosage: FREQUENCY: OVER 1 HOUR ON DAYS 1, 8 AND 15.
     Route: 042
     Dates: start: 20091204

REACTIONS (1)
  - CHOLECYSTITIS [None]
